FAERS Safety Report 14991700 (Version 2)
Quarter: 2018Q2

REPORT INFORMATION
  Report Type: Spontaneous
  Country: AT (occurrence: AT)
  Receive Date: 20180608
  Receipt Date: 20180618
  Transmission Date: 20180711
  Serious: Yes (Hospitalization)
  Sender: FDA-Public Use
  Company Number: AT-BIOGEN-2018BI00592769

PATIENT
  Age: 30 Year
  Sex: Female

DRUGS (1)
  1. AVONEX [Suspect]
     Active Substance: INTERFERON BETA-1A
     Indication: MULTIPLE SCLEROSIS
     Route: 030
     Dates: end: 2017

REACTIONS (7)
  - Multiple sclerosis relapse [Unknown]
  - Palpitations [Recovered/Resolved]
  - Paraesthesia [Unknown]
  - Multiple sclerosis [Unknown]
  - Facial paresis [Unknown]
  - Sensory disturbance [Recovered/Resolved]
  - Dyspnoea [Recovered/Resolved]

NARRATIVE: CASE EVENT DATE: 201602
